FAERS Safety Report 7412535-8 (Version None)
Quarter: 2011Q2

REPORT INFORMATION
  Report Type: 
  Country: None (occurrence: None)
  Receive Date: 20110408
  Receipt Date: 20110408
  Transmission Date: 20111010
  Serious: Yes (Other)
  Sender: FDA-Public Use
  Company Number: None

PATIENT
  Sex: Female
  Weight: 108.8633 kg

DRUGS (1)
  1. MIRENA [Suspect]
     Indication: CONTRACEPTION
     Dates: start: 20110328, end: 20110406

REACTIONS (6)
  - UTERINE SPASM [None]
  - IRRITABILITY [None]
  - LIBIDO DECREASED [None]
  - DISTURBANCE IN ATTENTION [None]
  - CONFUSIONAL STATE [None]
  - MOOD SWINGS [None]
